FAERS Safety Report 6125685-3 (Version None)
Quarter: 2009Q1

REPORT INFORMATION
  Report Type: 
  Country: None (occurrence: None)
  Receive Date: 20090317
  Receipt Date: 20090302
  Transmission Date: 20090719
  Serious: Yes (Disabling)
  Sender: FDA-Public Use
  Company Number: 2009S1003642

PATIENT
  Age: 78 Year
  Sex: Female

DRUGS (2)
  1. VALPROIC ACID [Suspect]
     Indication: SYNCOPE
     Dosage: 500 MG;
  2. DONEPEZIL HCL [Concomitant]

REACTIONS (12)
  - BRADYKINESIA [None]
  - BRADYPHRENIA [None]
  - COGNITIVE DISORDER [None]
  - CONDITION AGGRAVATED [None]
  - DISORIENTATION [None]
  - DISTURBANCE IN ATTENTION [None]
  - HYPERTONIA [None]
  - HYPOPHONESIS [None]
  - HYPOREFLEXIA [None]
  - MUSCLE RIGIDITY [None]
  - MUSCULOSKELETAL STIFFNESS [None]
  - PARKINSONISM [None]
